FAERS Safety Report 19003934 (Version 1)
Quarter: 2021Q1

REPORT INFORMATION
  Report Type: Spontaneous
  Country: US (occurrence: US)
  Receive Date: 20210312
  Receipt Date: 20210312
  Transmission Date: 20210420
  Serious: No
  Sender: FDA-Public Use
  Company Number: US-SMITH AND NEPHEW, INC-2020SMT00041

PATIENT
  Sex: Male
  Weight: 74.83 kg

DRUGS (5)
  1. LEVEMIR [Concomitant]
     Active Substance: INSULIN DETEMIR
  2. COLLAGENASE SANTYL [Suspect]
     Active Substance: COLLAGENASE CLOSTRIDIUM HISTOLYTICUM
     Indication: WOUND
     Dosage: UNK
     Route: 061
     Dates: end: 20200416
  3. HUMALOG [Concomitant]
     Active Substance: INSULIN LISPRO
  4. COLLAGENASE SANTYL [Suspect]
     Active Substance: COLLAGENASE CLOSTRIDIUM HISTOLYTICUM
     Dosage: UNK UNK, 2X/DAY
     Route: 061
     Dates: start: 20200417
  5. UNSPECIFIED WOUND MEDICATIONS [Suspect]
     Active Substance: UNSPECIFIED INGREDIENT
     Indication: WOUND
     Route: 061

REACTIONS (7)
  - Skin swelling [Recovering/Resolving]
  - Scratch [Recovered/Resolved]
  - Skin irritation [Recovered/Resolved]
  - Pain [Not Recovered/Not Resolved]
  - Wound complication [Recovered/Resolved]
  - Blister [Recovered/Resolved]
  - Erythema [Recovering/Resolving]
